FAERS Safety Report 22968958 (Version 5)
Quarter: 2025Q1

REPORT INFORMATION
  Report Type: Spontaneous
  Country: DE (occurrence: DE)
  Receive Date: 20230922
  Receipt Date: 20250310
  Transmission Date: 20250409
  Serious: Yes (Life-Threatening, Hospitalization, Other)
  Sender: CELLTRION
  Company Number: DE-CELLTRION INC.-2023DE018339

PATIENT

DRUGS (11)
  1. ADALIMUMAB [Suspect]
     Active Substance: ADALIMUMAB
     Indication: Hidradenitis
     Route: 058
  2. USTEKINUMAB [Suspect]
     Active Substance: USTEKINUMAB
     Indication: Hidradenitis
  3. INFLIXIMAB [Suspect]
     Active Substance: INFLIXIMAB
     Indication: Hidradenitis
  4. RINVOQ [Suspect]
     Active Substance: UPADACITINIB
     Indication: Hidradenitis
     Route: 048
     Dates: start: 20230106, end: 20230219
  5. VARICELLA-ZOSTER VIRUS STRAIN OKA/MERCK LIVE ANTIGEN [Suspect]
     Active Substance: VARICELLA-ZOSTER VIRUS STRAIN OKA/MERCK LIVE ANTIGEN
     Indication: Prophylaxis
  6. UPADACITINIB [Suspect]
     Active Substance: UPADACITINIB
     Indication: Hidradenitis
     Route: 048
     Dates: start: 20230106, end: 20230217
  7. CERTOLIZUMAB PEGOL [Concomitant]
     Active Substance: CERTOLIZUMAB PEGOL
     Indication: Hidradenitis
  8. DENOSUMAB [Concomitant]
     Active Substance: DENOSUMAB
     Route: 058
  9. MIRTAZAPINE [Concomitant]
     Active Substance: MIRTAZAPINE
     Route: 065
  10. PREGABALIN [Concomitant]
     Active Substance: PREGABALIN
     Route: 016
  11. ANAKINRA [Concomitant]
     Active Substance: ANAKINRA
     Indication: Hidradenitis

REACTIONS (31)
  - Haemophagocytic lymphohistiocytosis [Recovered/Resolved]
  - Seizure [Recovered/Resolved]
  - Haemophagocytic lymphohistiocytosis [Recovered/Resolved]
  - Cellulitis [Recovered/Resolved]
  - Varicella zoster virus infection [Recovering/Resolving]
  - Herpes zoster meningoencephalitis [Recovering/Resolving]
  - Pneumonia aspiration [Recovered/Resolved]
  - Sepsis [Recovered/Resolved]
  - Oesophageal candidiasis [Recovered/Resolved]
  - Immunosuppression [Recovered/Resolved]
  - Vaccination failure [Unknown]
  - Condition aggravated [Recovering/Resolving]
  - Seizure [Recovering/Resolving]
  - Superinfection bacterial [Recovering/Resolving]
  - Varicella zoster virus infection [Recovered/Resolved]
  - Pneumonia [Recovering/Resolving]
  - Immunosuppression [Recovering/Resolving]
  - Varicella zoster pneumonia [Recovering/Resolving]
  - Splenomegaly [Recovering/Resolving]
  - Hypertriglyceridaemia [Recovering/Resolving]
  - Blister [Recovering/Resolving]
  - Scab [Recovering/Resolving]
  - Hyperferritinaemia [Recovering/Resolving]
  - Rash [Recovering/Resolving]
  - Pyrexia [Recovering/Resolving]
  - Rash papular [Recovering/Resolving]
  - Skin lesion [Recovering/Resolving]
  - Drug ineffective [Unknown]
  - Off label use [Unknown]
  - Off label use [Unknown]
  - Intentional product use issue [Unknown]

NARRATIVE: CASE EVENT DATE: 20230101
